FAERS Safety Report 5075588-0 (Version None)
Quarter: 2006Q3

REPORT INFORMATION
  Report Type: 
  Country: None (occurrence: None)
  Receive Date: 20060809
  Receipt Date: 20060731
  Transmission Date: 20061208
  Serious: Yes (Hospitalization)
  Sender: FDA-Public Use
  Company Number: US-ROCHE-457794

PATIENT
  Age: 83 Year
  Sex: Female

DRUGS (3)
  1. BONIVA [Suspect]
     Indication: OSTEOPOROSIS
     Route: 048
     Dates: start: 20051115, end: 20060515
  2. PREDNISONE [Concomitant]
     Route: 048
  3. 1 CONCOMITANT DRUG [Concomitant]
     Dosage: REPORTED AS CANCER MEDICATION (NOS)

REACTIONS (2)
  - FALL [None]
  - PELVIC FRACTURE [None]
